FAERS Safety Report 5147010-7 (Version None)
Quarter: 2006Q4

REPORT INFORMATION
  Report Type: 
  Country: None (occurrence: None)
  Receive Date: 20061103
  Receipt Date: 20061013
  Transmission Date: 20070319
  Serious: Yes (Hospitalization)
  Sender: FDA-Public Use
  Company Number: 2006131676

PATIENT
  Age: 7 Year
  Sex: Female

DRUGS (7)
  1. LOMOTIL [Suspect]
     Indication: ABDOMINAL PAIN
     Dosage: 2.5 MG
  2. LOPERAMIDE HCL [Suspect]
     Dosage: 2 MG (4 IN 1 D)
  3. HYOSCINE HBR HYT [Suspect]
     Indication: VOMITING
     Dosage: 0.5 MG (4 IN 1 D)
  4. HYOSCINE HBR HYT [Suspect]
     Dosage: 10 MG (4 IN 1 D)
  5. CHLORPHENIRAMINE (CHLORPHENIRAMINE) [Suspect]
     Dosage: 4 MG (4 IN 1 D)
  6. ALL OTHER THERAPEUTIC PRODUCTS [Concomitant]
  7. ACETAMINOPHEN [Concomitant]

REACTIONS (12)
  - BLOOD CREATININE INCREASED [None]
  - DEHYDRATION [None]
  - GASTROENTERITIS [None]
  - ILEUS [None]
  - MUCOSAL DRYNESS [None]
  - MYDRIASIS [None]
  - PHARYNGOLARYNGEAL PAIN [None]
  - RHINORRHOEA [None]
  - SOMNOLENCE [None]
  - TACHYCARDIA [None]
  - TACHYPNOEA [None]
  - THERAPEUTIC AGENT TOXICITY [None]
